FAERS Safety Report 9711460 (Version 1)
Quarter: 2013Q4

REPORT INFORMATION
  Report Type: Spontaneous
  Country: US (occurrence: US)
  Receive Date: 20131126
  Receipt Date: 20131126
  Transmission Date: 20140711
  Serious: Yes (Hospitalization, Other)
  Sender: FDA-Public Use
  Company Number: US-FRI-1000051652

PATIENT
  Age: 64 Year
  Sex: Female

DRUGS (5)
  1. VIIBRYD [Suspect]
     Indication: DEPRESSION
     Dosage: 10 MG
     Route: 048
     Dates: start: 20131105, end: 20131106
  2. VYTORIN [Concomitant]
     Indication: BLOOD CHOLESTEROL INCREASED
  3. TOPAMAX [Concomitant]
     Indication: MIGRAINE
  4. CARAFATE [Concomitant]
     Indication: GASTROOESOPHAGEAL REFLUX DISEASE
  5. RANITIDINE [Concomitant]
     Indication: GASTROOESOPHAGEAL REFLUX DISEASE

REACTIONS (5)
  - Hypersensitivity [Recovering/Resolving]
  - Hepatic enzyme increased [Not Recovered/Not Resolved]
  - Loss of consciousness [Recovered/Resolved]
  - Contusion [Unknown]
  - Scratch [Unknown]
